FAERS Safety Report 22077153 (Version 5)
Quarter: 2023Q1

REPORT INFORMATION
  Report Type: Report from Study
  Country: FR (occurrence: None)
  Receive Date: 20230309
  Receipt Date: 20230327
  Transmission Date: 20230418
  Serious: Yes (Death, Hospitalization)
  Sender: FDA-Public Use
  Company Number: FR-ROCHE-3291020

PATIENT
  Age: 71 Year
  Sex: Female
  Weight: 73.4 kg

DRUGS (10)
  1. ATEZOLIZUMAB [Suspect]
     Active Substance: ATEZOLIZUMAB
     Indication: Neoplasm
     Dosage: ON 17/FEB/2023, HE RECEIVED MOST RECENT DOSE OF ATEZOLIZUMAB PRIOR TO AE.?CUMULATIVE DOSE SINCE 1ST
     Route: 041
     Dates: start: 20230217, end: 20230217
  2. INVESTIGATIONAL PRODUCT [Suspect]
     Active Substance: INVESTIGATIONAL PRODUCT
     Indication: Neoplasm
     Dosage: C1 D8?ON 24/FEB/2023, HE RECEIVED LAST DOSE OF BDB 001 PRIOR TO AE.?2.8 MILLIGRAM TOTAL DOSE RECEIVE
     Route: 042
     Dates: start: 20230217, end: 20230224
  3. SKENAN [Concomitant]
     Active Substance: MORPHINE SULFATE
     Route: 048
  4. KARDEGIC [Concomitant]
     Active Substance: ASPIRIN DL-LYSINE
     Route: 048
  5. PAROXETINE [Concomitant]
     Active Substance: PAROXETINE
     Route: 048
  6. ZOPICLONE [Concomitant]
     Active Substance: ZOPICLONE
     Route: 048
  7. PANTOPRAZOLE [Concomitant]
     Active Substance: PANTOPRAZOLE
     Route: 048
  8. NALOXEGOL OXALATE [Concomitant]
     Active Substance: NALOXEGOL OXALATE
     Route: 048
  9. BISOPROLOL [Concomitant]
     Active Substance: BISOPROLOL
     Route: 048
  10. INNOHEP [Concomitant]
     Active Substance: TINZAPARIN SODIUM
     Route: 058

REACTIONS (3)
  - Wound complication [Not Recovered/Not Resolved]
  - Cytokine release syndrome [Recovered/Resolved]
  - Disease progression [Fatal]

NARRATIVE: CASE EVENT DATE: 20230219
